FAERS Safety Report 5982118-5 (Version None)
Quarter: 2008Q4

REPORT INFORMATION
  Report Type: 
  Country: None (occurrence: None)
  Receive Date: 20081202
  Receipt Date: 20081126
  Transmission Date: 20090506
  Serious: Yes (Death, Hospitalization)
  Sender: FDA-Public Use
  Company Number: 2008SP019251

PATIENT
  Age: 71 Year
  Sex: Female

DRUGS (4)
  1. TEMODAL [Suspect]
     Indication: ANAPLASTIC ASTROCYTOMA
     Dosage: 130 MG;QD;PO
     Route: 048
     Dates: start: 20080124, end: 20080309
  2. ESIDRIX [Concomitant]
  3. LAMICTAL [Concomitant]
  4. ZYLORIC [Concomitant]

REACTIONS (8)
  - ANAEMIA [None]
  - EPISTAXIS [None]
  - HAEMATOTOXICITY [None]
  - LEUKOPENIA [None]
  - NEUTROPENIA [None]
  - PULMONARY EMBOLISM [None]
  - SUDDEN DEATH [None]
  - THROMBOCYTOPENIA [None]
